FAERS Safety Report 4679985-4 (Version None)
Quarter: 2005Q2

REPORT INFORMATION
  Report Type: 
  Country: None (occurrence: None)
  Receive Date: 20050531
  Receipt Date: 20050518
  Transmission Date: 20051028
  Serious: Yes (Hospitalization)
  Sender: FDA-Public Use
  Company Number: B0381359A

PATIENT
  Age: 14 Year
  Sex: Male

DRUGS (2)
  1. CEFAZOLIN [Suspect]
     Indication: GASTROENTERITIS
     Dosage: 1 GRAM(S) / PER DAY/  INTRAVENOUS
     Route: 042
     Dates: start: 20050413, end: 20050414
  2. ALLERGY MEDICATION [Concomitant]

REACTIONS (2)
  - BLOOD PRESSURE DECREASED [None]
  - DRUG HYPERSENSITIVITY [None]
